FAERS Safety Report 6403749-4 (Version None)
Quarter: 2009Q4

REPORT INFORMATION
  Report Type: 
  Country: None (occurrence: None)
  Receive Date: 20091015
  Receipt Date: 20091015
  Transmission Date: 20100525
  Serious: No
  Sender: FDA-Public Use
  Company Number: None

PATIENT

DRUGS (1)
  1. GENTAMYCIN SULFATE [Suspect]
     Indication: PROPHYLAXIS
     Dosage: INTRAOCULAR
     Route: 014

REACTIONS (3)
  - EYE SWELLING [None]
  - EYELID MARGIN CRUSTING [None]
  - OCULAR HYPERAEMIA [None]
